FAERS Safety Report 5828171-0 (Version None)
Quarter: 2008Q3

REPORT INFORMATION
  Report Type: 
  Country: None (occurrence: None)
  Receive Date: 20080731
  Receipt Date: 20080722
  Transmission Date: 20090109
  Serious: No
  Sender: FDA-Public Use
  Company Number: JP-PFIZER INC-2007000044

PATIENT
  Age: 82 Year
  Sex: Male

DRUGS (4)
  1. QUINAPRIL HCL [Suspect]
     Dosage: DAILY DOSE:20MG
     Route: 048
     Dates: start: 19980301, end: 20061222
  2. ISOSORBIDE DINITRATE [Suspect]
     Dosage: DAILY DOSE:40MG
     Route: 048
  3. TICLOPIDINE HCL [Suspect]
     Dosage: DAILY DOSE:200MG
     Route: 048
  4. PLAVIX [Concomitant]
     Route: 048

REACTIONS (1)
  - NO ADVERSE EVENT [None]
